FAERS Safety Report 9848462 (Version 1)
Quarter: 2013Q4

REPORT INFORMATION
  Report Type: Spontaneous
  Country: US (occurrence: None)
  Receive Date: 20131226
  Receipt Date: 20131226
  Transmission Date: 20140711
  Serious: No
  Sender: FDA-Public Use
  Company Number: PHEH2012US020807

PATIENT
  Age: 75 Year
  Sex: Female

DRUGS (8)
  1. ARCAPTA [Suspect]
  2. QVAR (BECLOMETASONE DIPROPIONATE) [Concomitant]
  3. AZITHROMYCIN (AZITHROMYCIN) [Concomitant]
  4. ATIVAN (LORAZEPAM) [Concomitant]
  5. ZOLOFT (SERTRALINE HYDROCHLORIDE) [Concomitant]
  6. SIMVASTATIN (SIMVASTATIN) [Concomitant]
  7. METOPROLOL (METOPROLOL) [Concomitant]
  8. IMIPRAMINE PAMOATE (IMIPRAMINE EMBONATE) [Concomitant]

REACTIONS (4)
  - Drug ineffective [None]
  - Cough [None]
  - Diarrhoea [None]
  - Hypophagia [None]
